FAERS Safety Report 7438989-9 (Version None)
Quarter: 2011Q2

REPORT INFORMATION
  Report Type: 
  Country: None (occurrence: None)
  Receive Date: 20110427
  Receipt Date: 20110418
  Transmission Date: 20111010
  Serious: Yes (Hospitalization)
  Sender: FDA-Public Use
  Company Number: US-US-EMD SERONO, INC.-7055471

PATIENT
  Sex: Female
  Weight: 91 kg

DRUGS (4)
  1. BACLOFEN [Concomitant]
     Indication: MUSCLE SPASMS
  2. METADATE CD [Concomitant]
     Indication: DISTURBANCE IN ATTENTION
  3. SINGULAIR [Concomitant]
     Indication: HYPERSENSITIVITY
  4. REBIF [Suspect]
     Indication: MULTIPLE SCLEROSIS
     Route: 058
     Dates: start: 20091026

REACTIONS (2)
  - INSOMNIA [None]
  - OPTIC NEURITIS [None]
